FAERS Safety Report 10233494 (Version 6)
Quarter: 2014Q3

REPORT INFORMATION
  Report Type: Report from Study
  Country: CA (occurrence: CA)
  Receive Date: 20140612
  Receipt Date: 20140821
  Transmission Date: 20150326
  Serious: Yes (Death, Hospitalization)
  Sender: FDA-Public Use
  Company Number: PHHY2013CA028761

PATIENT
  Age: 51 Year
  Sex: Male

DRUGS (5)
  1. SUTENT [Concomitant]
     Active Substance: SUNITINIB MALATE
     Dosage: 37.5 MG, DAILY
  2. SANDOSTATIN LAR DEPOT [Suspect]
     Active Substance: OCTREOTIDE ACETATE
     Indication: NEUROENDOCRINE TUMOUR
     Dosage: 30 MG, EVERY 3 WEEKS
     Route: 030
     Dates: start: 20041204
  3. LACTULOSE. [Concomitant]
     Active Substance: LACTULOSE
     Dosage: 10 ML, TID
  4. AFINITOR [Suspect]
     Active Substance: EVEROLIMUS
     Indication: NEUROENDOCRINE TUMOUR
     Dosage: 5 MG, QD
     Route: 048
     Dates: start: 20120604
  5. DOCUSATE SODIUM. [Concomitant]
     Active Substance: DOCUSATE SODIUM
     Dosage: 100 MG, UNK

REACTIONS (11)
  - Blood potassium decreased [Unknown]
  - Haemoglobin decreased [Unknown]
  - Peripheral vascular disorder [Unknown]
  - Constipation [Unknown]
  - Malignant neoplasm progression [Unknown]
  - Oedema peripheral [Not Recovered/Not Resolved]
  - Myalgia [Unknown]
  - Asthenia [Unknown]
  - Death [Fatal]
  - Hypoaesthesia [Unknown]
  - Limb discomfort [Unknown]

NARRATIVE: CASE EVENT DATE: 20140430
